FAERS Safety Report 15222333 (Version 1)
Quarter: 2018Q3

REPORT INFORMATION
  Report Type: Spontaneous
  Country: CA (occurrence: CA)
  Receive Date: 20180731
  Receipt Date: 20180731
  Transmission Date: 20181010
  Serious: Yes (Other)
  Sender: FDA-Public Use
  Company Number: CA-CELLTRION INC.-2018CA018418

PATIENT

DRUGS (5)
  1. INFLECTRA [Suspect]
     Active Substance: INFLIXIMAB-DYYB
     Dosage: 340 MG, CYCLIC (EVERY 0, 2,6 THEN EVERY 8 WEEKS)
     Route: 042
     Dates: start: 20180501
  2. INFLECTRA [Suspect]
     Active Substance: INFLIXIMAB-DYYB
     Dosage: 5 MG/KG, CYCLIC
     Route: 042
     Dates: start: 20180528, end: 20180528
  3. PREDNISONE. [Concomitant]
     Active Substance: PREDNISONE
  4. INFLECTRA [Suspect]
     Active Substance: INFLIXIMAB-DYYB
     Indication: CROHN^S DISEASE
     Dosage: 5 MG/KG, CYCLIC, EVERY 0,2,6 THEN EVERY 8 WEEKS
     Route: 042
     Dates: start: 20180223
  5. INFLECTRA [Suspect]
     Active Substance: INFLIXIMAB-DYYB
     Dosage: 340 MG, CYCLIC (EVERY 0, 2,6 THEN EVERY 8 WEEKS)
     Route: 042
     Dates: start: 20180416

REACTIONS (2)
  - Drug ineffective [Recovering/Resolving]
  - Small intestine carcinoma [Unknown]
